FAERS Safety Report 16982608 (Version 1)
Quarter: 2019Q4

REPORT INFORMATION
  Report Type: Spontaneous
  Country: US (occurrence: US)
  Receive Date: 20191101
  Receipt Date: 20191101
  Transmission Date: 20200122
  Serious: Yes (Hospitalization, Other)
  Sender: FDA-Public Use
  Company Number: US-ACCORD-065452

PATIENT
  Age: 76 Year
  Sex: Male

DRUGS (5)
  1. GEMZAR [Suspect]
     Active Substance: GEMCITABINE HYDROCHLORIDE
     Indication: BLADDER CANCER
  2. FOLINIC ACID [Suspect]
     Active Substance: LEUCOVORIN
     Indication: BLADDER CANCER
  3. CISPLATIN. [Suspect]
     Active Substance: CISPLATIN
     Indication: BLADDER CANCER
  4. FLUOROURACIL. [Suspect]
     Active Substance: FLUOROURACIL
     Indication: BLADDER CANCER
  5. OXALIPLATIN. [Suspect]
     Active Substance: OXALIPLATIN
     Indication: BLADDER CANCER

REACTIONS (15)
  - Tremor [Unknown]
  - Urinary tract infection [Unknown]
  - Dizziness [Unknown]
  - Decreased appetite [Unknown]
  - Off label use [Unknown]
  - Depression [Unknown]
  - Fatigue [Unknown]
  - Nausea [Unknown]
  - Acute kidney injury [Unknown]
  - Thrombocytopenia [Unknown]
  - Stomatitis [Unknown]
  - Anxiety [Unknown]
  - Anaemia [Unknown]
  - Syncope [Unknown]
  - Pneumonia [Unknown]
